FAERS Safety Report 15742699 (Version 2)
Quarter: 2019Q4

REPORT INFORMATION
  Report Type: Spontaneous
  Country: GB (occurrence: GB)
  Receive Date: 20181219
  Receipt Date: 20191015
  Transmission Date: 20200122
  Serious: Yes (Hospitalization, Other)
  Sender: FDA-Public Use
  Company Number: GB-MYLANLABS-2018M1095058

PATIENT
  Sex: Male

DRUGS (1)
  1. CLOZARIL [Suspect]
     Active Substance: CLOZAPINE
     Indication: SCHIZOPHRENIA
     Dosage: UNK
     Route: 048
     Dates: start: 20131206

REACTIONS (6)
  - Neutropenia [Unknown]
  - Physical assault [Unknown]
  - Malnutrition [Unknown]
  - Syncope [Unknown]
  - Aggression [Unknown]
  - Mental impairment [Unknown]

NARRATIVE: CASE EVENT DATE: 2018
